FAERS Safety Report 8383590-6 (Version None)
Quarter: 2012Q1

REPORT INFORMATION
  Report Type: 
  Country: None (occurrence: None)
  Receive Date: 20120323
  Receipt Date: 20110318
  Transmission Date: 20120608
  Serious: Yes (Other)
  Sender: FDA-Public Use
  Company Number: 163-21880-11032356

PATIENT
  Age: 77 Year
  Sex: Female

DRUGS (4)
  1. AMLOIDPINE (AMLODIPINE) [Concomitant]
  2. BENAZEPRIL HYDROCHLORIDE [Concomitant]
  3. REVLIMID [Suspect]
     Indication: MULTIPLE MYELOMA
     Dosage: 15 MG, DAILY X 21 DAYS PO
     Route: 048
     Dates: start: 20100707
  4. SERTRALINE HYDROCHLORIDE [Concomitant]

REACTIONS (1)
  - PARAESTHESIA [None]
